FAERS Safety Report 11493709 (Version 1)
Quarter: 2015Q3

REPORT INFORMATION
  Report Type: Spontaneous
  Country: US (occurrence: None)
  Receive Date: 20150910
  Receipt Date: 20150910
  Transmission Date: 20151125
  Serious: Yes (Hospitalization)
  Sender: FDA-Public Use
  Company Number: None

PATIENT
  Age: 44 Year
  Sex: Male

DRUGS (1)
  1. HARVONI [Suspect]
     Active Substance: LEDIPASVIR\SOFOSBUVIR
     Indication: HEPATITIS C
     Dosage: 90/400 QDAY ORAL
     Route: 048
     Dates: start: 20150702

REACTIONS (6)
  - Animal scratch [None]
  - Cellulitis [None]
  - Pyrexia [None]
  - Drug hypersensitivity [None]
  - Bacterial infection [None]
  - Immune system disorder [None]

NARRATIVE: CASE EVENT DATE: 20150908
